FAERS Safety Report 6250896-6 (Version None)
Quarter: 2009Q2

REPORT INFORMATION
  Report Type: 
  Country: None (occurrence: None)
  Receive Date: 20090630
  Receipt Date: 20090518
  Transmission Date: 20091009
  Serious: No
  Sender: FDA-Public Use
  Company Number: US-BAUSCH-2009BL002483

PATIENT
  Age: 37 Year
  Sex: Male

DRUGS (1)
  1. ALAWAY [Suspect]
     Indication: SEASONAL ALLERGY
     Route: 047
     Dates: start: 20090504, end: 20090507

REACTIONS (1)
  - DRUG INEFFECTIVE [None]
